FAERS Safety Report 4843690-1 (Version None)
Quarter: 2005Q4

REPORT INFORMATION
  Report Type: 
  Country: None (occurrence: None)
  Receive Date: 20051129
  Receipt Date: 20051116
  Transmission Date: 20060501
  Serious: Yes (Hospitalization)
  Sender: FDA-Public Use
  Company Number: DE200511000759

PATIENT
  Age: 30 Year
  Sex: Female

DRUGS (2)
  1. ZYPREXA [Suspect]
     Indication: BIPOLAR DISORDER
     Dosage: 10 MG, DAILY (1/D);  SEE IMAGE
     Route: 048
     Dates: start: 20040217, end: 20040316
  2. ERGENYL CHRONO                (VALPROATE SODIUM, VALPROIC ACID) [Concomitant]

REACTIONS (1)
  - LEUKOPENIA [None]
